FAERS Safety Report 23026506 (Version 4)
Quarter: 2023Q4

REPORT INFORMATION
  Report Type: Other
  Country: AR (occurrence: None)
  Receive Date: 20231004
  Receipt Date: 20231212
  Transmission Date: 20240109
  Serious: Yes (Disabling)
  Sender: FDA-Public Use
  Company Number: AR-ROCHE-3431774

PATIENT
  Age: 48 Year
  Sex: Male

DRUGS (2)
  1. ERIVEDGE [Suspect]
     Active Substance: VISMODEGIB
     Indication: Basal cell carcinoma
     Route: 048
     Dates: start: 20230801
  2. CLOZAPINE [Concomitant]
     Active Substance: CLOZAPINE

REACTIONS (1)
  - Blindness [Unknown]

NARRATIVE: CASE EVENT DATE: 20230901
